FAERS Safety Report 19659258 (Version 2)
Quarter: 2021Q3

REPORT INFORMATION
  Report Type: Other
  Country: ES (occurrence: ES)
  Receive Date: 20210805
  Receipt Date: 20210811
  Transmission Date: 20211014
  Serious: Yes (Other)
  Sender: FDA-Public Use
  Company Number: ES-ROCHE-1423601

PATIENT
  Age: 79 Year
  Sex: Male

DRUGS (2)
  1. RITUXIMAB. [Suspect]
     Active Substance: RITUXIMAB
     Indication: CHRONIC LYMPHOCYTIC LEUKAEMIA
     Route: 041
  2. BENDAMUSTINE [Suspect]
     Active Substance: BENDAMUSTINE
     Indication: CHRONIC LYMPHOCYTIC LEUKAEMIA
     Dosage: 100?90 MG/M2 ON DAYS 1?2 IN 28?DAY CYCLES
     Route: 065

REACTIONS (3)
  - Septic shock [Unknown]
  - Cytomegalovirus infection reactivation [Unknown]
  - Epstein-Barr virus infection reactivation [Unknown]
